FAERS Safety Report 9205726 (Version 1)
Quarter: 2013Q1

REPORT INFORMATION
  Report Type: Spontaneous
  Country: US (occurrence: None)
  Receive Date: 20120709
  Receipt Date: 20120709
  Transmission Date: 20140127
  Serious: Yes (Other)
  Sender: FDA-Public Use
  Company Number: PHEH2012US009255

PATIENT
  Sex: Female

DRUGS (1)
  1. GLEEVEC (IMATINIB) [Suspect]
     Indication: LEUKAEMIA
     Route: 048
     Dates: start: 20080314, end: 20120502

REACTIONS (1)
  - Atrial fibrillation [None]
